FAERS Safety Report 7665299-7 (Version None)
Quarter: 2011Q3

REPORT INFORMATION
  Report Type: 
  Country: None (occurrence: None)
  Receive Date: 20110806
  Receipt Date: 20110607
  Transmission Date: 20111222
  Serious: No
  Sender: FDA-Public Use
  Company Number: US-ABBOTT-11P-163-0727155-00

PATIENT
  Sex: Female
  Weight: 83.536 kg

DRUGS (8)
  1. NIASPAN [Suspect]
     Indication: BLOOD CHOLESTEROL INCREASED
     Dates: start: 20110518, end: 20110521
  2. FLORINEF [Concomitant]
     Indication: PRODUCT USED FOR UNKNOWN INDICATION
  3. MULTI-VITAMINS [Concomitant]
     Indication: VITAMIN SUPPLEMENTATION
  4. FISH OIL [Concomitant]
     Indication: MINERAL SUPPLEMENTATION
  5. MONOPRIL [Concomitant]
     Indication: HYPERTENSION
  6. CORTISONE ACETATE [Concomitant]
     Indication: PRODUCT USED FOR UNKNOWN INDICATION
  7. SYNTHROID [Concomitant]
     Indication: ADDISON'S DISEASE
  8. CALCIUM ACETATE [Concomitant]
     Indication: MINERAL SUPPLEMENTATION

REACTIONS (6)
  - RASH PAPULAR [None]
  - RASH [None]
  - FLUSHING [None]
  - MIDDLE INSOMNIA [None]
  - FEELING HOT [None]
  - RASH PRURITIC [None]
